FAERS Safety Report 24432025 (Version 2)
Quarter: 2024Q4

REPORT INFORMATION
  Report Type: Spontaneous
  Country: IT (occurrence: IT)
  Receive Date: 20241014
  Receipt Date: 20241024
  Transmission Date: 20250115
  Serious: Yes (Hospitalization)
  Sender: BAUSCH AND LOMB
  Company Number: None

PATIENT
  Age: 91 Year
  Sex: Female

DRUGS (11)
  1. ENALAPRIL [Interacting]
     Active Substance: ENALAPRIL
     Indication: Hypertension
     Dosage: 20 MG ONCE A DAY
     Route: 048
  2. LEVOFLOXACIN [Interacting]
     Active Substance: LEVOFLOXACIN
     Indication: Bacterial infection
     Dosage: 500 MG, BID
     Route: 048
  3. LEVOFLOXACIN [Interacting]
     Active Substance: LEVOFLOXACIN
     Dosage: 500 MG, BID
     Route: 048
  4. TRAMADOL [Interacting]
     Active Substance: TRAMADOL
     Indication: Pain
     Dosage: UNK
     Route: 065
  5. GLYBURIDE\METFORMIN [Interacting]
     Active Substance: GLYBURIDE\METFORMIN
     Indication: Type 2 diabetes mellitus
     Dosage: ORALLY 3 X /DAY
     Route: 048
  6. LANSOPRAZOLE [Interacting]
     Active Substance: LANSOPRAZOLE
     Indication: Product used for unknown indication
     Dosage: 30 MG, DAILY
     Route: 065
  7. NADROPARIN [Interacting]
     Active Substance: NADROPARIN
     Indication: Ischaemic stroke
     Dosage: 3800 UNITS DAILY
     Route: 058
  8. ENALAPRIL\HYDROCHLOROTHIAZIDE [Suspect]
     Active Substance: ENALAPRIL\HYDROCHLOROTHIAZIDE
     Indication: Hypertension
     Dosage: 20MG/1.5 MG
     Route: 048
  9. BUPRENORPHINE [Suspect]
     Active Substance: BUPRENORPHINE
     Indication: Pain
     Dosage: UNK
     Route: 062
  10. ASPIRIN [Suspect]
     Active Substance: ASPIRIN
     Indication: Antiplatelet therapy
     Route: 065
  11. INSULIN NOS [Suspect]
     Active Substance: INSULIN NOS
     Indication: Product used for unknown indication
     Route: 065

REACTIONS (3)
  - Hypoglycaemic coma [Recovered/Resolved]
  - Drug interaction [Unknown]
  - Hypoglycaemia [Recovered/Resolved]
